FAERS Safety Report 20183037 (Version 4)
Quarter: 2023Q2

REPORT INFORMATION
  Report Type: Spontaneous
  Country: PE (occurrence: PE)
  Receive Date: 20211214
  Receipt Date: 20230613
  Transmission Date: 20230722
  Serious: Yes (Other)
  Sender: FDA-Public Use
  Company Number: PE-PFIZER INC-202101700044

PATIENT
  Age: 68 Year
  Sex: Male

DRUGS (5)
  1. SUTENT [Suspect]
     Active Substance: SUNITINIB MALATE
     Indication: Renal cancer metastatic
     Dosage: 50 MG, DAILY
     Route: 048
     Dates: start: 202008, end: 202009
  2. SUTENT [Suspect]
     Active Substance: SUNITINIB MALATE
     Dosage: 25 MG, DAILY
     Route: 048
     Dates: start: 202009
  3. OMEPRAZOLE [Concomitant]
     Active Substance: OMEPRAZOLE
     Dosage: UNK, DAILY
     Dates: start: 202110
  4. LEVOTHYROXINE SODIUM [Concomitant]
     Active Substance: LEVOTHYROXINE SODIUM
     Indication: Prophylaxis
     Dosage: UNK
     Dates: start: 202111
  5. METFORMIN HYDROCHLORIDE [Concomitant]
     Active Substance: METFORMIN HYDROCHLORIDE
     Indication: Diabetes mellitus
     Dosage: UNK, 3X/DAY (1 AT BREAKFAST, 1 AT LUNCH AND 1 AT DINNER)
     Dates: start: 2001

REACTIONS (14)
  - Anal injury [Recovering/Resolving]
  - Proctalgia [Recovering/Resolving]
  - Pain in extremity [Recovering/Resolving]
  - Skin fissures [Recovering/Resolving]
  - Mouth injury [Recovering/Resolving]
  - Tongue injury [Recovering/Resolving]
  - Varicose vein [Unknown]
  - Skin hypertrophy [Unknown]
  - Diarrhoea [Recovered/Resolved]
  - Pulmonary pain [Unknown]
  - Poor quality sleep [Unknown]
  - Limb discomfort [Not Recovered/Not Resolved]
  - Tongue discomfort [Not Recovered/Not Resolved]
  - Feeding disorder [Not Recovered/Not Resolved]

NARRATIVE: CASE EVENT DATE: 20200101
